FAERS Safety Report 24202387 (Version 1)
Quarter: 2024Q3

REPORT INFORMATION
  Report Type: Spontaneous
  Country: US (occurrence: US)
  Receive Date: 20240813
  Receipt Date: 20240813
  Transmission Date: 20241016
  Serious: No
  Sender: AMGEN
  Company Number: US-AMGEN-USASP2024158230

PATIENT
  Age: 32 Year
  Sex: Female

DRUGS (1)
  1. TEPEZZA [Suspect]
     Active Substance: TEPROTUMUMAB-TRBW
     Indication: Endocrine ophthalmopathy
     Dosage: 1 DOSAGE FORM, Q3WK FOR 8 INFUSIONS (1X EVERY 3 WEEKS)
     Route: 042
     Dates: start: 20240624

REACTIONS (3)
  - Unevaluable event [Unknown]
  - Headache [Unknown]
  - Nausea [Unknown]
